FAERS Safety Report 10502761 (Version 1)
Quarter: 2014Q4

REPORT INFORMATION
  Report Type: Spontaneous
  Country: IE (occurrence: IE)
  Receive Date: 20141007
  Receipt Date: 20141007
  Transmission Date: 20150528
  Serious: Yes (Disabling)
  Sender: FDA-Public Use
  Company Number: IE-SYMPLMED PHARMACEUTICALS-2014SYM00102

PATIENT
  Age: 63 Year
  Sex: Male

DRUGS (5)
  1. ACETYLSALICYLIC ACID [Concomitant]
     Active Substance: ASPIRIN
     Indication: POSTOPERATIVE CARE
     Dosage: 75 MG, QD
     Route: 048
  2. ACEON [Suspect]
     Active Substance: PERINDOPRIL ERBUMINE
     Indication: POSTOPERATIVE CARE
     Dosage: 5 MG, QD
     Route: 048
     Dates: start: 20140702, end: 20140705
  3. BRILIQUE [Concomitant]
     Active Substance: TICAGRELOR
     Indication: POSTOPERATIVE CARE
     Dosage: 90 MG, BID
     Route: 048
  4. BISOPROLOL [Concomitant]
     Active Substance: BISOPROLOL
     Indication: POSTOPERATIVE CARE
     Dosage: 1.25 MG, QD
     Route: 048
  5. AMLODIPINE [Concomitant]
     Active Substance: AMLODIPINE BESYLATE
     Indication: POSTOPERATIVE CARE
     Dosage: 10 MG, QD
     Route: 048

REACTIONS (4)
  - Visual impairment [Recovered/Resolved]
  - Muscle spasms [Recovered/Resolved]
  - Cough [Recovered/Resolved]
  - Tinnitus [Recovered/Resolved]

NARRATIVE: CASE EVENT DATE: 20140702
